FAERS Safety Report 5025059-2 (Version None)
Quarter: 2006Q2

REPORT INFORMATION
  Report Type: 
  Country: None (occurrence: None)
  Receive Date: 20060613
  Receipt Date: 20060608
  Transmission Date: 20061013
  Serious: Yes (Other)
  Sender: FDA-Public Use
  Company Number: DE-BRISTOL-MYERS SQUIBB COMPANY-13407317

PATIENT

DRUGS (2)
  1. IRBESARTAN [Suspect]
     Indication: PORTAL HYPERTENSION
     Dosage: STEP-UP DOSAGE TITRATED UP TO 300 MG/D
  2. PROPRANOLOL [Suspect]
     Indication: PORTAL HYPERTENSION

REACTIONS (1)
  - BLEEDING VARICOSE VEIN [None]
